FAERS Safety Report 10201360 (Version 1)
Quarter: 2014Q2

REPORT INFORMATION
  Report Type: Spontaneous
  Country: BR (occurrence: BR)
  Receive Date: 20140528
  Receipt Date: 20140528
  Transmission Date: 20141212
  Serious: Yes (Other)
  Sender: FDA-Public Use
  Company Number: BR-ABBVIE-14P-020-1241192-00

PATIENT
  Age: 16 Year
  Sex: Male
  Weight: 135 kg

DRUGS (2)
  1. DEPAKOTE ER [Suspect]
     Indication: PRODUCT USED FOR UNKNOWN INDICATION
     Dosage: 500 MG AT NIGHT
  2. DEPAKOTE ER [Suspect]
     Dosage: DAILY DOSE: 1000MG,  IN THE MORNING AND AFTERNOON

REACTIONS (6)
  - Convulsion [Unknown]
  - Visual impairment [Unknown]
  - Speech disorder [Unknown]
  - Weight increased [Unknown]
  - Malaise [Unknown]
  - Blood glucose abnormal [Unknown]
